FAERS Safety Report 13200662 (Version 1)
Quarter: 2017Q1

REPORT INFORMATION
  Report Type: Spontaneous
  Country: US (occurrence: US)
  Receive Date: 20170209
  Receipt Date: 20170209
  Transmission Date: 20170428
  Serious: No
  Sender: FDA-Public Use
  Company Number: US-ASTRAZENECA-2017SE11874

PATIENT
  Sex: Male

DRUGS (1)
  1. BRILINTA [Suspect]
     Active Substance: TICAGRELOR
     Indication: STENT PLACEMENT
     Dosage: DOSE UNKNOWN
     Route: 048
     Dates: start: 2014

REACTIONS (1)
  - Hypoacusis [Unknown]
